FAERS Safety Report 4677958-9 (Version None)
Quarter: 2005Q2

REPORT INFORMATION
  Report Type: 
  Country: None (occurrence: None)
  Receive Date: 20050531
  Receipt Date: 20050412
  Transmission Date: 20051028
  Serious: Yes (Other)
  Sender: FDA-Public Use
  Company Number: US-JNJFOC-20050403807

PATIENT
  Age: 31 Year
  Sex: Female
  Weight: 40.82 kg

DRUGS (2)
  1. TYLENOL [Suspect]
     Route: 049
  2. TYLENOL [Suspect]
     Indication: HEADACHE
     Route: 049

REACTIONS (5)
  - BURNING SENSATION [None]
  - DRUG HYPERSENSITIVITY [None]
  - OVERDOSE [None]
  - PRURITUS [None]
  - RASH GENERALISED [None]
